FAERS Safety Report 18217575 (Version 1)
Quarter: 2020Q3

REPORT INFORMATION
  Report Type: Spontaneous
  Country: US (occurrence: US)
  Receive Date: 20200831
  Receipt Date: 20200831
  Transmission Date: 20201103
  Serious: Yes (Hospitalization)
  Sender: FDA-Public Use
  Company Number: None

PATIENT
  Age: 66 Year
  Sex: Male
  Weight: 61 kg

DRUGS (1)
  1. LITHIUM (LITHIUM CARBONATE 300MG CAP) [Suspect]
     Active Substance: LITHIUM CARBONATE
     Indication: DEPRESSION
     Route: 048
     Dates: start: 20070507, end: 20200723

REACTIONS (11)
  - Nausea [None]
  - Antipsychotic drug level increased [None]
  - Diarrhoea [None]
  - Abdominal pain [None]
  - Heart rate decreased [None]
  - Hypophagia [None]
  - Vomiting [None]
  - Mental status changes [None]
  - Dehydration [None]
  - Acute kidney injury [None]
  - Hypotension [None]

NARRATIVE: CASE EVENT DATE: 20200723
